FAERS Safety Report 13395852 (Version 8)
Quarter: 2017Q4

REPORT INFORMATION
  Report Type: Spontaneous
  Country: CH (occurrence: CH)
  Receive Date: 20170403
  Receipt Date: 20171113
  Transmission Date: 20180320
  Serious: Yes (Hospitalization)
  Sender: FDA-Public Use
  Company Number: CH-LPDUSPRD-20170351

PATIENT
  Sex: Female

DRUGS (2)
  1. FERINJECT [Suspect]
     Active Substance: FERRIC CARBOXYMALTOSE
     Dosage: 2 TOTAL
     Route: 042
     Dates: start: 20170124, end: 201702
  2. MALTOFER [Suspect]
     Active Substance: IRON POLYMALTOSE
     Dosage: UNKNOWN
     Route: 048

REACTIONS (10)
  - Dyspnoea [Recovered/Resolved]
  - Asthenia [Recovered/Resolved]
  - Arthralgia [Recovered/Resolved]
  - Hypophosphataemia [Recovered/Resolved]
  - Nervousness [Recovered/Resolved]
  - Paraesthesia [Recovered/Resolved]
  - Dysphagia [Recovered/Resolved]
  - Anxiety [Recovered/Resolved]
  - Muscular weakness [Recovered/Resolved]
  - Chest discomfort [Recovered/Resolved]

NARRATIVE: CASE EVENT DATE: 2017
